FAERS Safety Report 14386423 (Version 2)
Quarter: 2018Q2

REPORT INFORMATION
  Report Type: Spontaneous
  Country: US (occurrence: US)
  Receive Date: 20180115
  Receipt Date: 20180531
  Transmission Date: 20180711
  Serious: Yes (Other)
  Sender: FDA-Public Use
  Company Number: US-SA-2017SA123302

PATIENT
  Age: 50 Year
  Sex: Female
  Weight: 100 kg

DRUGS (4)
  1. NEOSAR [Concomitant]
     Active Substance: CYCLOPHOSPHAMIDE
     Dosage: UNK UNK,QCY
     Route: 065
  2. TAXOTERE [Suspect]
     Active Substance: DOCETAXEL
     Dosage: 150 MG,Q3W
     Route: 051
     Dates: start: 20101115, end: 20101115
  3. CYTOXAN [Concomitant]
     Active Substance: CYCLOPHOSPHAMIDE
  4. TAXOTERE [Suspect]
     Active Substance: DOCETAXEL
     Indication: BREAST CANCER
     Dosage: 150 MG,Q3W
     Route: 051
     Dates: start: 20100719, end: 20100719

REACTIONS (2)
  - Alopecia [Recovering/Resolving]
  - Psychological trauma [Unknown]
